FAERS Safety Report 10648566 (Version 1)
Quarter: 2014Q4

REPORT INFORMATION
  Report Type: Spontaneous
  Country: FI (occurrence: FI)
  Receive Date: 20141212
  Receipt Date: 20141212
  Transmission Date: 20150529
  Serious: Yes (Other)
  Sender: FDA-Public Use
  Company Number: FI-GLAXOSMITHKLINE-FI2014GSK034087

PATIENT
  Age: 36 Year
  Sex: Female

DRUGS (2)
  1. VALACICLOVIR [Suspect]
     Active Substance: VALACYCLOVIR HYDROCHLORIDE
     Indication: GENITAL HERPES
     Dosage: 500 MG, BID
     Route: 048
     Dates: start: 20140509, end: 20140513
  2. CONTRACEPTIVE PATCH [Concomitant]
     Indication: CONTRACEPTION
     Route: 062

REACTIONS (4)
  - Delirium [Recovered/Resolved]
  - Hypoaesthesia [Recovered/Resolved]
  - Hallucination, visual [Recovered/Resolved]
  - Vomiting [Recovered/Resolved]

NARRATIVE: CASE EVENT DATE: 20140510
